FAERS Safety Report 6766454-0 (Version None)
Quarter: 2010Q2

REPORT INFORMATION
  Report Type: 
  Country: None (occurrence: None)
  Receive Date: 20100611
  Receipt Date: 20100601
  Transmission Date: 20101027
  Serious: Yes (Hospitalization)
  Sender: FDA-Public Use
  Company Number: US-PFIZER INC-2010069939

PATIENT
  Sex: Male
  Weight: 70 kg

DRUGS (21)
  1. BLINDED *NO SUBJECT DRUG [Suspect]
     Indication: CARDIAC FAILURE
     Dosage: UNK MG, ALTERNATE DAY
     Route: 048
     Dates: end: 20100531
  2. BLINDED *PLACEBO [Suspect]
     Indication: CARDIAC FAILURE
     Dosage: UNK MG, ALTERNATE DAY
     Route: 048
     Dates: end: 20100531
  3. EPLERENONE [Suspect]
     Indication: CARDIAC FAILURE
     Dosage: UNK MG, ALTERNATE DAY
     Route: 048
     Dates: end: 20100531
  4. ACETYLSALICYLIC ACID [Concomitant]
     Dosage: UNK
     Route: 048
     Dates: start: 20040428
  5. LOPRESSOR [Concomitant]
     Dosage: UNK
     Route: 048
     Dates: start: 20090805
  6. NITROGLYCERIN [Concomitant]
     Dosage: UNK
     Route: 048
     Dates: start: 20010104
  7. PLAVIX [Concomitant]
     Dosage: UNK
     Route: 048
     Dates: start: 20021031
  8. LORATADINE [Concomitant]
     Dosage: UNK
     Route: 048
     Dates: start: 20041027
  9. AMLODIPINE BESILATE [Concomitant]
     Dosage: UNK
     Route: 048
     Dates: start: 20091104, end: 20100520
  10. SERENOA REPENS [Concomitant]
     Dosage: UNK
     Route: 048
     Dates: start: 20070110
  11. METFORMIN HYDROCHLORIDE [Concomitant]
     Dosage: UNK
     Route: 048
     Dates: start: 20090316
  12. GLIPIZIDE [Concomitant]
     Dosage: UNK
     Route: 048
     Dates: start: 20080616
  13. SIMVASTATIN [Concomitant]
     Dosage: UNK
     Route: 048
     Dates: start: 20090805
  14. VALSARTAN [Concomitant]
     Dosage: UNK
     Route: 048
     Dates: start: 20090805
  15. MULTI-VITAMINS [Concomitant]
     Dosage: UNK
     Route: 048
     Dates: start: 20100115
  16. LASIX [Concomitant]
     Dosage: UNK
     Route: 048
     Dates: start: 20100219, end: 20100520
  17. FELODIPINE [Concomitant]
     Dosage: UNK
  18. BUMEX [Concomitant]
     Dosage: UNK
     Route: 048
     Dates: start: 20100520
  19. LOVAZA [Concomitant]
     Dosage: UNK
     Dates: start: 20100526
  20. K-DUR [Concomitant]
     Dosage: UNK
     Route: 048
     Dates: start: 20100527
  21. FLUTICASONE [Concomitant]
     Dosage: UNK
     Route: 045
     Dates: start: 20040428

REACTIONS (3)
  - CARDIAC FAILURE CONGESTIVE [None]
  - CONDITION AGGRAVATED [None]
  - RENAL FAILURE [None]
